FAERS Safety Report 8117424-1 (Version None)
Quarter: 2012Q1

REPORT INFORMATION
  Report Type: 
  Country: None (occurrence: None)
  Receive Date: 20120207
  Receipt Date: 20120127
  Transmission Date: 20120608
  Serious: Yes (Other)
  Sender: FDA-Public Use
  Company Number: AR-AMGEN-ARGSP2012006313

PATIENT
  Age: 80 Year
  Sex: Female
  Weight: 40 kg

DRUGS (4)
  1. IBANDRONATE SODIUM [Concomitant]
     Dosage: UNK
  2. ATENOLOL [Concomitant]
     Dosage: UNK
  3. ENBREL [Suspect]
     Indication: RHEUMATOID ARTHRITIS
     Dosage: 50 MG, WEEKLY
     Route: 058
     Dates: start: 20071002, end: 20110901
  4. METHOTREXATE [Concomitant]
     Dosage: UNK

REACTIONS (2)
  - HIP FRACTURE [None]
  - FALL [None]
